FAERS Safety Report 11031280 (Version 4)
Quarter: 2015Q3

REPORT INFORMATION
  Report Type: Spontaneous
  Country: DK (occurrence: DK)
  Receive Date: 20150415
  Receipt Date: 20150716
  Transmission Date: 20151125
  Serious: Yes (Death, Hospitalization, Other)
  Sender: FDA-Public Use
  Company Number: DK-ASTRAZENECA-2015SE32742

PATIENT
  Age: 29916 Day
  Sex: Male

DRUGS (6)
  1. PANTOPRAZOLE [Concomitant]
     Active Substance: PANTOPRAZOLE SODIUM
     Indication: RENAL DISORDER
  2. PHOSPHATE (SODIUM PHOSPHATE, DIBASIC\SODIUM PHOSPHATE, MONOBASIC) [Concomitant]
     Active Substance: SODIUM PHOSPHATE, DIBASIC\SODIUM PHOSPHATE, MONOBASIC
     Dosage: AS REQUIRED
  3. ASPIRIN. [Concomitant]
     Active Substance: ASPIRIN
  4. VITAMIN C [Concomitant]
     Active Substance: ASCORBIC ACID
     Dosage: AS REQUIRED
  5. VITAMIN B [Concomitant]
     Active Substance: VITAMIN B
     Dosage: AS REQUIRED
  6. ENTOCORT [Suspect]
     Active Substance: BUDESONIDE
     Indication: COLITIS
     Route: 048
     Dates: start: 20150317, end: 20150321

REACTIONS (6)
  - Lower respiratory tract infection fungal [Fatal]
  - Sepsis [Unknown]
  - Pneumonia pneumococcal [Fatal]
  - Asthenia [Unknown]
  - Off label use [Unknown]
  - Diarrhoea [Unknown]

NARRATIVE: CASE EVENT DATE: 20150326
